FAERS Safety Report 7607704-8 (Version None)
Quarter: 2011Q3

REPORT INFORMATION
  Report Type: 
  Country: None (occurrence: None)
  Receive Date: 20110713
  Receipt Date: 20110526
  Transmission Date: 20111222
  Serious: Yes (Other)
  Sender: FDA-Public Use
  Company Number: PHHY2011JP20359

PATIENT
  Sex: Female
  Weight: 49 kg

DRUGS (3)
  1. AFINITOR [Suspect]
     Indication: RENAL CELL CARCINOMA
     Dosage: 10 MG, DAILY
     Route: 048
     Dates: start: 20101206, end: 20110202
  2. MICARDIS [Concomitant]
     Dosage: 20 MG, UNK
     Route: 048
  3. CONIEL [Concomitant]
     Dosage: 8 MG, UNK
     Route: 048

REACTIONS (5)
  - FOLLICULITIS [None]
  - BLOOD CREATININE INCREASED [None]
  - BLOOD CREATINE PHOSPHOKINASE INCREASED [None]
  - NEUTROPHIL COUNT DECREASED [None]
  - WHITE BLOOD CELL COUNT DECREASED [None]
